FAERS Safety Report 8129514-8 (Version None)
Quarter: 2012Q1

REPORT INFORMATION
  Report Type: 
  Country: None (occurrence: None)
  Receive Date: 20120210
  Receipt Date: 20120207
  Transmission Date: 20120608
  Serious: No
  Sender: FDA-Public Use
  Company Number: US-PFIZER INC-2012034777

PATIENT
  Age: 72 Year
  Sex: Female

DRUGS (1)
  1. ATORVASTATIN CALCIUM [Suspect]
     Dosage: NDC 0591-3775-19, IMPRINT: 20/PD156
     Dates: start: 20120116

REACTIONS (1)
  - DRUG INEFFECTIVE [None]
